FAERS Safety Report 7495760-X (Version None)
Quarter: 2011Q2

REPORT INFORMATION
  Report Type: 
  Country: None (occurrence: None)
  Receive Date: 20110523
  Receipt Date: 20110513
  Transmission Date: 20111010
  Serious: Yes (Life-Threatening, Hospitalization, Other)
  Sender: FDA-Public Use
  Company Number: US-ELI_LILLY_AND_COMPANY-US201105005279

PATIENT
  Age: 28 Year
  Sex: Male

DRUGS (4)
  1. ZYPREXA [Suspect]
     Indication: OBSESSIVE-COMPULSIVE DISORDER
     Dosage: 15 MG, QD
     Dates: start: 20100801, end: 20101220
  2. KLONOPIN [Concomitant]
  3. ZYPREXA [Suspect]
     Dosage: 420 MG, SINGLE
     Dates: start: 20101220, end: 20101220
  4. ZYPREXA [Suspect]
     Dosage: UNK
     Dates: start: 20110331

REACTIONS (8)
  - INTENTIONAL OVERDOSE [None]
  - SUICIDE ATTEMPT [None]
  - PERIPHERAL ISCHAEMIA [None]
  - HYPOTONIA [None]
  - OFF LABEL USE [None]
  - ENDOTRACHEAL INTUBATION [None]
  - LOSS OF CONSCIOUSNESS [None]
  - ACNE [None]
